FAERS Safety Report 6834262-8 (Version None)
Quarter: 2010Q3

REPORT INFORMATION
  Report Type: 
  Country: None (occurrence: None)
  Receive Date: 20100712
  Receipt Date: 20070521
  Transmission Date: 20110219
  Serious: No
  Sender: FDA-Public Use
  Company Number: US-PFIZER INC-2007031050

PATIENT
  Sex: Female
  Weight: 68.04 kg

DRUGS (5)
  1. CHANTIX [Suspect]
     Indication: SMOKING CESSATION THERAPY
     Dates: start: 20070324
  2. ATENOLOL AND CHLORTHALIDONE [Concomitant]
     Indication: HYPERTENSION
  3. ATENOLOL AND CHLORTHALIDONE [Concomitant]
     Indication: HEART RATE INCREASED
  4. PREMARIN [Concomitant]
  5. CELECOXIB [Concomitant]

REACTIONS (5)
  - ANXIETY [None]
  - HYPOTENSION [None]
  - MALAISE [None]
  - NAUSEA [None]
  - PANIC ATTACK [None]
